FAERS Safety Report 6288715-4 (Version None)
Quarter: 2009Q3

REPORT INFORMATION
  Report Type: 
  Country: None (occurrence: None)
  Receive Date: 20090729
  Receipt Date: 20090724
  Transmission Date: 20100115
  Serious: Yes (Death, Other)
  Sender: FDA-Public Use
  Company Number: US-BRISTOL-MYERS SQUIBB COMPANY-14714257

PATIENT
  Sex: Female

DRUGS (2)
  1. ORENCIA [Suspect]
     Dosage: APPROXIMATELY 4-5 INFUSION. DURATION:SEVERAL WEEKS LAST INFUSION:20JUL09
     Dates: end: 20090720
  2. ZITHROMAX [Concomitant]
     Indication: PNEUMONIA

REACTIONS (2)
  - DEATH [None]
  - PNEUMONIA [None]
